FAERS Safety Report 25990004 (Version 1)
Quarter: 2025Q4

REPORT INFORMATION
  Report Type: Spontaneous
  Country: BT (occurrence: BT)
  Receive Date: 20251103
  Receipt Date: 20251103
  Transmission Date: 20260118
  Serious: Yes (Other)
  Sender: AIPING PHARMACEUTICAL
  Company Number: BT-AIPING-2025AILIT00184

PATIENT
  Age: 80 Year
  Sex: Male

DRUGS (1)
  1. WARFARIN SODIUM [Suspect]
     Active Substance: WARFARIN SODIUM
     Indication: Atrial fibrillation
     Route: 065

REACTIONS (5)
  - Cardiac tamponade [Recovered/Resolved]
  - Pericardial haemorrhage [Recovered/Resolved]
  - Toxicity to various agents [Unknown]
  - Anticoagulation drug level above therapeutic [Recovered/Resolved]
  - Haematoma [Recovered/Resolved]
